FAERS Safety Report 7094495-5 (Version None)
Quarter: 2010Q4

REPORT INFORMATION
  Report Type: 
  Country: None (occurrence: None)
  Receive Date: 20101110
  Receipt Date: 20101102
  Transmission Date: 20110411
  Serious: Yes (Other)
  Sender: FDA-Public Use
  Company Number: GXKR2010DK05321

PATIENT
  Sex: Female

DRUGS (9)
  1. EPIRUBICIN [Suspect]
     Indication: BREAST CANCER METASTATIC
     Dosage: 97 MG, 6 TIMES, ONCE IN THREE WEEKS
     Route: 065
     Dates: start: 20060711, end: 20061026
  2. CYCLOPHOSPHAMIDE [Suspect]
     Indication: BREAST CANCER METASTATIC
     Dosage: 978 MG 6 TIMES, ONCE IN THREE WEEKS
     Route: 065
     Dates: start: 20060711, end: 20061026
  3. FLUOROURACIL [Suspect]
     Indication: BREAST CANCER METASTATIC
     Dosage: 978 MG 6 TIMES, ONCE IN THREE WEEKS
     Route: 065
     Dates: start: 20060711, end: 20061026
  4. ZOFRAN [Concomitant]
  5. PREDNISOLONE [Concomitant]
  6. VOGALENE [Concomitant]
  7. HERBAL EXTRACTS NOS [Concomitant]
  8. BETA BLOCKING AGENTS [Concomitant]
  9. NORTRIPTYLINE HCL [Concomitant]

REACTIONS (6)
  - APHASIA [None]
  - DISORIENTATION [None]
  - DISTURBANCE IN ATTENTION [None]
  - HEADACHE [None]
  - MEMORY IMPAIRMENT [None]
  - PAIN [None]
